FAERS Safety Report 4323501-3 (Version None)
Quarter: 2004Q1

REPORT INFORMATION
  Report Type: 
  Country: None (occurrence: None)
  Receive Date: 20040325
  Receipt Date: 20040203
  Transmission Date: 20041129
  Serious: Yes (Hospitalization, Other)
  Sender: FDA-Public Use
  Company Number: PHBS2004JP01798

PATIENT
  Age: 8 Month
  Sex: Male
  Weight: 6 kg

DRUGS (9)
  1. NEORAL [Suspect]
     Indication: LIVER TRANSPLANT
     Dosage: 100 MG/D
     Route: 048
     Dates: start: 20031205, end: 20040115
  2. NEORAL [Suspect]
     Dosage: 80 MG/D
     Route: 048
     Dates: start: 20040116
  3. CELLCEPT [Concomitant]
     Dosage: 60 MG/D
     Route: 048
     Dates: start: 20031212, end: 20040115
  4. CELLCEPT [Concomitant]
     Dosage: 45 MG/D
     Route: 048
     Dates: start: 20040116
  5. SOLU-MEDROL [Concomitant]
     Dosage: 14 MG/D
     Route: 042
     Dates: start: 20031127
  6. SANDIMMUNE [Concomitant]
     Dosage: 50 MG/D
     Route: 042
     Dates: start: 20031127, end: 20031204
  7. PREDONINE [Concomitant]
     Dosage: 1 MG/D
     Route: 048
     Dates: start: 20031222
  8. DENOSINE ^TANABE^ [Suspect]
     Indication: CYTOMEGALOVIRUS INFECTION
     Dosage: 60 MG/D
     Route: 042
     Dates: start: 20040114, end: 20040117
  9. VANCOMYCIN HYDROCHLORIDE [Concomitant]
     Dosage: 300 MG/D
     Route: 042
     Dates: start: 20031127, end: 20031222

REACTIONS (4)
  - CYTOMEGALOVIRUS INFECTION [None]
  - DRUG INTERACTION [None]
  - HYPERKALAEMIA [None]
  - RENAL IMPAIRMENT [None]
